FAERS Safety Report 4480845-2 (Version None)
Quarter: 2004Q4

REPORT INFORMATION
  Report Type: 
  Country: None (occurrence: None)
  Receive Date: 20041021
  Receipt Date: 20041011
  Transmission Date: 20050328
  Serious: Yes (Hospitalization)
  Sender: FDA-Public Use
  Company Number: FR-ABBOTT-04P-056-0276974-00

PATIENT
  Age: 56 Year
  Sex: Male

DRUGS (7)
  1. DEPAKOTE [Suspect]
     Indication: EPILEPSY
     Route: 048
  2. HYDROXYZINE HYDROCHLORIDE [Suspect]
     Indication: DRUG USE FOR UNKNOWN INDICATION
     Route: 048
     Dates: end: 20040912
  3. NOCTRAN 10 [Suspect]
     Indication: DRUG USE FOR UNKNOWN INDICATION
     Route: 048
     Dates: end: 20040912
  4. CLONAZEPAM [Suspect]
     Indication: DRUG USE FOR UNKNOWN INDICATION
     Route: 048
     Dates: end: 20040912
  5. OMEPRAZOLE [Concomitant]
     Indication: DRUG USE FOR UNKNOWN INDICATION
     Route: 048
  6. ZOCOR [Concomitant]
     Indication: DRUG USE FOR UNKNOWN INDICATION
     Route: 048
  7. BIPERIDEN HYDROCHLORIDE [Concomitant]
     Indication: DRUG USE FOR UNKNOWN INDICATION
     Route: 048

REACTIONS (7)
  - CEREBRAL ATROPHY [None]
  - CONFUSIONAL STATE [None]
  - DISORIENTATION [None]
  - NORMOCHROMIC NORMOCYTIC ANAEMIA [None]
  - POLYNEUROPATHY [None]
  - RENAL FAILURE [None]
  - SUBDURAL HAEMATOMA [None]
